FAERS Safety Report 8598962-4 (Version None)
Quarter: 2012Q3

REPORT INFORMATION
  Report Type: 
  Country: None (occurrence: None)
  Receive Date: 20120806
  Receipt Date: 20120806
  Transmission Date: 20120928
  Serious: Yes (Other)
  Sender: FDA-Public Use
  Company Number: None

PATIENT
  Sex: Female

DRUGS (1)
  1. LEVOFLOXACIN [Suspect]
     Indication: TOOTH DISORDER
     Dosage: 500 MG ONCE A DAY PO
     Route: 048
     Dates: start: 20120801, end: 20120802

REACTIONS (8)
  - OEDEMA PERIPHERAL [None]
  - PAIN IN EXTREMITY [None]
  - BLOOD PRESSURE INCREASED [None]
  - FEELING HOT [None]
  - PALPITATIONS [None]
  - NERVOUSNESS [None]
  - URTICARIA [None]
  - TENDERNESS [None]
